FAERS Safety Report 6458765-3 (Version None)
Quarter: 2009Q4

REPORT INFORMATION
  Report Type: 
  Country: None (occurrence: None)
  Receive Date: 20091120
  Receipt Date: 20091111
  Transmission Date: 20100525
  Serious: No
  Sender: FDA-Public Use
  Company Number: 430570

PATIENT
  Age: 31 Year
  Sex: Female
  Weight: 53 kg

DRUGS (5)
  1. PRECEDEX [Suspect]
     Indication: SEDATION
     Dosage: 0.4MCG/KG/HR, CONTINUOUS, INTRAVENOUS; .2 ML ( 1 DAY ) INTRAVENOUS
     Dates: start: 20091029, end: 20091029
  2. BUPRENORPHINE HYDROCHLORIDE [Concomitant]
  3. (AMPICILLIN W/ SULBACTAM) [Concomitant]
  4. (NAFAMOSTAT MESILATE) [Concomitant]
  5. (ULINASTATIN) [Concomitant]

REACTIONS (2)
  - ASTHMA [None]
  - CONDITION AGGRAVATED [None]
